FAERS Safety Report 14421780 (Version 3)
Quarter: 2018Q2

REPORT INFORMATION
  Report Type: Spontaneous
  Country: US (occurrence: US)
  Receive Date: 20180122
  Receipt Date: 20180418
  Transmission Date: 20180711
  Serious: Yes (Death, Other)
  Sender: FDA-Public Use
  Company Number: US-AMGEN-USASP2018007165

PATIENT
  Age: 77 Year
  Sex: Male
  Weight: 86.17 kg

DRUGS (1)
  1. PROCRIT [Suspect]
     Active Substance: ERYTHROPOIETIN
     Indication: PRODUCT USED FOR UNKNOWN INDICATION
     Dosage: 10000 UNIT, 3 TIMES/WK
     Route: 030
     Dates: start: 2013

REACTIONS (5)
  - Fall [Fatal]
  - Hypothermia [Fatal]
  - Drug dependence [Unknown]
  - Intentional product misuse [Unknown]
  - Incorrect route of drug administration [Unknown]

NARRATIVE: CASE EVENT DATE: 2013
